FAERS Safety Report 13031781 (Version 1)
Quarter: 2016Q4

REPORT INFORMATION
  Report Type: Spontaneous
  Country: US (occurrence: US)
  Receive Date: 20161215
  Receipt Date: 20161215
  Transmission Date: 20170207
  Serious: No
  Sender: FDA-Public Use
  Company Number: US-GALDERMA-US16004192

PATIENT
  Sex: Female

DRUGS (2)
  1. METROGEL [Suspect]
     Active Substance: METRONIDAZOLE
     Indication: ECZEMA
     Route: 061
  2. EXEL CREAM [Concomitant]
     Indication: ECZEMA
     Route: 061

REACTIONS (2)
  - Drug ineffective for unapproved indication [Unknown]
  - Product use issue [Recovered/Resolved]
